FAERS Safety Report 25166929 (Version 1)
Quarter: 2025Q2

REPORT INFORMATION
  Report Type: Spontaneous
  Country: CA (occurrence: CA)
  Receive Date: 20250407
  Receipt Date: 20250407
  Transmission Date: 20250716
  Serious: Yes (Death, Other)
  Sender: MYLAN
  Company Number: CA-MYLANLABS-2025M1029263

PATIENT

DRUGS (52)
  1. VENLAFAXINE [Suspect]
     Active Substance: VENLAFAXINE HYDROCHLORIDE
     Indication: Major depression
  2. VENLAFAXINE [Suspect]
     Active Substance: VENLAFAXINE HYDROCHLORIDE
  3. VENLAFAXINE [Suspect]
     Active Substance: VENLAFAXINE HYDROCHLORIDE
     Route: 065
  4. VENLAFAXINE [Suspect]
     Active Substance: VENLAFAXINE HYDROCHLORIDE
     Route: 065
  5. VENLAFAXINE [Suspect]
     Active Substance: VENLAFAXINE HYDROCHLORIDE
  6. VENLAFAXINE [Suspect]
     Active Substance: VENLAFAXINE HYDROCHLORIDE
  7. VENLAFAXINE [Suspect]
     Active Substance: VENLAFAXINE HYDROCHLORIDE
     Route: 065
  8. VENLAFAXINE [Suspect]
     Active Substance: VENLAFAXINE HYDROCHLORIDE
     Route: 065
  9. NORTRIPTYLINE [Suspect]
     Active Substance: NORTRIPTYLINE
     Indication: Psychotic disorder
  10. NORTRIPTYLINE [Suspect]
     Active Substance: NORTRIPTYLINE
     Indication: Major depression
     Route: 065
  11. NORTRIPTYLINE [Suspect]
     Active Substance: NORTRIPTYLINE
     Route: 065
  12. NORTRIPTYLINE [Suspect]
     Active Substance: NORTRIPTYLINE
  13. RISPERIDONE [Suspect]
     Active Substance: RISPERIDONE
     Indication: Psychotic disorder
  14. RISPERIDONE [Suspect]
     Active Substance: RISPERIDONE
  15. RISPERIDONE [Suspect]
     Active Substance: RISPERIDONE
     Route: 065
  16. RISPERIDONE [Suspect]
     Active Substance: RISPERIDONE
     Route: 065
  17. RISPERIDONE [Suspect]
     Active Substance: RISPERIDONE
     Dosage: 1 MILLIGRAM, BID
  18. RISPERIDONE [Suspect]
     Active Substance: RISPERIDONE
     Dosage: 1 MILLIGRAM, BID
  19. RISPERIDONE [Suspect]
     Active Substance: RISPERIDONE
     Dosage: 1 MILLIGRAM, BID
     Route: 065
  20. RISPERIDONE [Suspect]
     Active Substance: RISPERIDONE
     Dosage: 1 MILLIGRAM, BID
     Route: 065
  21. RISPERIDONE [Suspect]
     Active Substance: RISPERIDONE
     Dosage: 3 MILLIGRAM, QD (1 MILLIGRAM IN MORNING AND 2 MILLIGRAM IN NIGHT)
  22. RISPERIDONE [Suspect]
     Active Substance: RISPERIDONE
     Dosage: 3 MILLIGRAM, QD (1 MILLIGRAM IN MORNING AND 2 MILLIGRAM IN NIGHT)
  23. RISPERIDONE [Suspect]
     Active Substance: RISPERIDONE
     Dosage: 3 MILLIGRAM, QD (1 MILLIGRAM IN MORNING AND 2 MILLIGRAM IN NIGHT)
     Route: 065
  24. RISPERIDONE [Suspect]
     Active Substance: RISPERIDONE
     Dosage: 3 MILLIGRAM, QD (1 MILLIGRAM IN MORNING AND 2 MILLIGRAM IN NIGHT)
     Route: 065
  25. RISPERIDONE [Suspect]
     Active Substance: RISPERIDONE
  26. RISPERIDONE [Suspect]
     Active Substance: RISPERIDONE
  27. RISPERIDONE [Suspect]
     Active Substance: RISPERIDONE
     Route: 065
  28. RISPERIDONE [Suspect]
     Active Substance: RISPERIDONE
     Route: 065
  29. RISPERIDONE [Suspect]
     Active Substance: RISPERIDONE
  30. RISPERIDONE [Suspect]
     Active Substance: RISPERIDONE
     Route: 065
  31. RISPERIDONE [Suspect]
     Active Substance: RISPERIDONE
  32. RISPERIDONE [Suspect]
     Active Substance: RISPERIDONE
     Route: 065
  33. OLANZAPINE [Suspect]
     Active Substance: OLANZAPINE
     Indication: Psychotic disorder
  34. OLANZAPINE [Suspect]
     Active Substance: OLANZAPINE
  35. OLANZAPINE [Suspect]
     Active Substance: OLANZAPINE
     Route: 065
  36. OLANZAPINE [Suspect]
     Active Substance: OLANZAPINE
     Route: 065
  37. OLANZAPINE [Suspect]
     Active Substance: OLANZAPINE
  38. OLANZAPINE [Suspect]
     Active Substance: OLANZAPINE
  39. OLANZAPINE [Suspect]
     Active Substance: OLANZAPINE
     Route: 065
  40. OLANZAPINE [Suspect]
     Active Substance: OLANZAPINE
     Route: 065
  41. OLANZAPINE [Suspect]
     Active Substance: OLANZAPINE
     Dosage: 5 MILLIGRAM, QD
  42. OLANZAPINE [Suspect]
     Active Substance: OLANZAPINE
     Dosage: 5 MILLIGRAM, QD
     Route: 065
  43. OLANZAPINE [Suspect]
     Active Substance: OLANZAPINE
     Dosage: 5 MILLIGRAM, QD
  44. OLANZAPINE [Suspect]
     Active Substance: OLANZAPINE
     Dosage: 5 MILLIGRAM, QD
     Route: 065
  45. LOXAPINE [Suspect]
     Active Substance: LOXAPINE
     Indication: Product used for unknown indication
  46. LOXAPINE [Suspect]
     Active Substance: LOXAPINE
     Route: 065
  47. LOXAPINE [Suspect]
     Active Substance: LOXAPINE
     Route: 065
  48. LOXAPINE [Suspect]
     Active Substance: LOXAPINE
  49. DIPHENHYDRAMINE [Suspect]
     Active Substance: DIPHENHYDRAMINE
     Indication: Product used for unknown indication
  50. DIPHENHYDRAMINE [Suspect]
     Active Substance: DIPHENHYDRAMINE
     Route: 065
  51. DIPHENHYDRAMINE [Suspect]
     Active Substance: DIPHENHYDRAMINE
     Route: 065
  52. DIPHENHYDRAMINE [Suspect]
     Active Substance: DIPHENHYDRAMINE

REACTIONS (5)
  - Pulmonary embolism [Fatal]
  - Amenorrhoea [Unknown]
  - Weight increased [Unknown]
  - Hyperprolactinaemia [Unknown]
  - Overdose [Unknown]
